FAERS Safety Report 7469972-5 (Version None)
Quarter: 2011Q2

REPORT INFORMATION
  Report Type: 
  Country: None (occurrence: None)
  Receive Date: 20110510
  Receipt Date: 20110506
  Transmission Date: 20111010
  Serious: Yes (Other)
  Sender: FDA-Public Use
  Company Number: DE-ROCHE-771665

PATIENT
  Sex: Female
  Weight: 75 kg

DRUGS (2)
  1. FENISTIL (DIMETINDENE) [Concomitant]
     Indication: PREMEDICATION
     Route: 042
     Dates: start: 20100614
  2. HERCEPTIN [Suspect]
     Indication: BREAST CANCER
     Dosage: ADJUVANT THERAPY
     Route: 042
     Dates: start: 20100614

REACTIONS (1)
  - ALOPECIA [None]
